FAERS Safety Report 4838314-3 (Version None)
Quarter: 2005Q4

REPORT INFORMATION
  Report Type: 
  Country: None (occurrence: None)
  Receive Date: 20051128
  Receipt Date: 20051115
  Transmission Date: 20060501
  Serious: Yes (Other)
  Sender: FDA-Public Use
  Company Number: PHBS2005ES17057

PATIENT

DRUGS (2)
  1. ZOMETA [Suspect]
     Indication: MULTIPLE MYELOMA
     Dosage: UNK, QMO
     Route: 065
  2. ZOMETA [Suspect]
     Dosage: UNK, Q3MO
     Route: 065

REACTIONS (2)
  - OSTEONECROSIS [None]
  - SURGERY [None]
